FAERS Safety Report 7469387-X (Version None)
Quarter: 2011Q2

REPORT INFORMATION
  Report Type: 
  Country: None (occurrence: None)
  Receive Date: 20110506
  Receipt Date: 20110506
  Transmission Date: 20111010
  Serious: Yes (Disabling)
  Sender: FDA-Public Use
  Company Number: None

PATIENT
  Age: 50 Year
  Sex: Female
  Weight: 58.0604 kg

DRUGS (1)
  1. MULTAQ [Suspect]
     Dosage: 800 MG 2X PO
     Route: 048
     Dates: start: 20101001, end: 20110221

REACTIONS (1)
  - HEPATIC ENZYME INCREASED [None]
